FAERS Safety Report 8871827 (Version 1)
Quarter: 2012Q4

REPORT INFORMATION
  Report Type: Spontaneous
  Country: US (occurrence: None)
  Receive Date: 20121025
  Receipt Date: 20121025
  Transmission Date: 20130627
  Serious: Yes (Hospitalization)
  Sender: FDA-Public Use
  Company Number: 2012CT000021

PATIENT
  Age: 64 Year
  Sex: Female
  Weight: 54.43 kg

DRUGS (13)
  1. KORLYM [Suspect]
     Indication: CUSHING^S DISEASE
     Route: 048
     Dates: start: 201207, end: 20120902
  2. LISINOPRIL [Concomitant]
  3. METFORMIN [Concomitant]
  4. ATORVASTATIN [Concomitant]
  5. CITALOPRAM [Concomitant]
  6. AMLODIPINE [Concomitant]
  7. METOPROLOL [Concomitant]
  8. COMBIPATCH [Concomitant]
  9. METFORMIN ER [Concomitant]
  10. FISH OIL [Concomitant]
  11. LECITHIN [Concomitant]
  12. VITAMIN B [Concomitant]
  13. EVENING PRIMROSE OIL [Concomitant]

REACTIONS (9)
  - Cardiac failure congestive [None]
  - Decreased appetite [None]
  - Weight decreased [None]
  - Abnormal behaviour [None]
  - Blood potassium decreased [None]
  - Asthenia [None]
  - Swelling [None]
  - Fluid retention [None]
  - Abasia [None]
